FAERS Safety Report 14614782 (Version 2)
Quarter: 2018Q4

REPORT INFORMATION
  Report Type: Spontaneous
  Country: FR (occurrence: FR)
  Receive Date: 20180308
  Receipt Date: 20181026
  Transmission Date: 20190204
  Serious: Yes (Other)
  Sender: FDA-Public Use
  Company Number: FR-MERCK KGAA-2043329

PATIENT
  Age: 39 Year
  Sex: Female

DRUGS (1)
  1. EUTHYROX [Suspect]
     Active Substance: LEVOTHYROXINE SODIUM
     Indication: PRODUCT USED FOR UNKNOWN INDICATION
     Dates: start: 201707

REACTIONS (15)
  - Dry skin [None]
  - Loss of personal independence in daily activities [None]
  - Personal relationship issue [None]
  - Migraine [None]
  - Decreased interest [None]
  - Thyroxine free increased [None]
  - Weight increased [None]
  - Fatigue [None]
  - Social problem [None]
  - Alopecia [None]
  - Disturbance in attention [None]
  - Depression [None]
  - Myalgia [None]
  - Depressed mood [None]
  - Hyperthyroidism [None]

NARRATIVE: CASE EVENT DATE: 201708
